FAERS Safety Report 11704220 (Version 1)
Quarter: 2015Q4

REPORT INFORMATION
  Report Type: Spontaneous
  Country: US (occurrence: None)
  Receive Date: 20151105
  Receipt Date: 20151105
  Transmission Date: 20160304
  Serious: No
  Sender: FDA-Public Use
  Company Number: None

PATIENT
  Age: 25 Year
  Sex: Female
  Weight: 117.94 kg

DRUGS (1)
  1. MIRENA [Suspect]
     Active Substance: LEVONORGESTREL
     Indication: CONTRACEPTION
     Dosage: ALAWAYS
     Route: 067
     Dates: start: 20150409, end: 20150605

REACTIONS (4)
  - Menstrual disorder [None]
  - Muscle spasms [None]
  - Device dislocation [None]
  - Impaired work ability [None]

NARRATIVE: CASE EVENT DATE: 20150602
